FAERS Safety Report 9548154 (Version 1)
Quarter: 2013Q2

REPORT INFORMATION
  Report Type: Spontaneous
  Country: US (occurrence: None)
  Receive Date: 20130524
  Receipt Date: 20130524
  Transmission Date: 20140414
  Serious: No
  Sender: FDA-Public Use
  Company Number: PHEH2013US004890

PATIENT
  Sex: Female
  Weight: 70.3 kg

DRUGS (9)
  1. GILENYA (FINGOLIMOD) CAPSULE, 0.5 MG [Suspect]
     Route: 048
  2. TIZANIDINE (TIZANIDINE) [Concomitant]
  3. DOXEPIN HCL (DOXEPIN HYDROCHLORIDE) [Concomitant]
  4. CYMBALTA (DULOXETINE HYDROCHLORIDE) [Concomitant]
  5. RANITIDINE (RANITIDINE) [Concomitant]
  6. GABAPENTIN (GABAPENTIN) [Concomitant]
  7. LEVOTHYROXIN (LEVOTHYROXINE SODIUM) [Concomitant]
  8. AMANTADINE (AMANTADINE) [Concomitant]
  9. VICODIN (HYDROCHLORIDE BITARTRATE, PARACETAMOL) [Concomitant]

REACTIONS (2)
  - Fatigue [None]
  - Memory impairment [None]
